FAERS Safety Report 5813916-6 (Version None)
Quarter: 2008Q3

REPORT INFORMATION
  Report Type: 
  Country: None (occurrence: None)
  Receive Date: 20080717
  Receipt Date: 20080709
  Transmission Date: 20090109
  Serious: Yes (Other)
  Sender: FDA-Public Use
  Company Number: CH-SANOFI-SYNTHELABO-A01200807904

PATIENT
  Age: 41 Year
  Sex: Female

DRUGS (1)
  1. CHLOROQUINE PHOSPHATE [Suspect]
     Indication: ROSACEA
     Dosage: UNK
     Route: 065

REACTIONS (1)
  - EOSINOPHILIC PNEUMONIA ACUTE [None]
